FAERS Safety Report 14662004 (Version 1)
Quarter: 2018Q1

REPORT INFORMATION
  Report Type: Spontaneous
  Country: FR (occurrence: FR)
  Receive Date: 20180320
  Receipt Date: 20180320
  Transmission Date: 20180509
  Serious: Yes (Other)
  Sender: FDA-Public Use
  Company Number: FR-MERCK KGAA-2044171

PATIENT
  Age: 62 Year
  Sex: Female

DRUGS (1)
  1. NOVOTHYROX [Suspect]
     Active Substance: LEVOTHYROXINE SODIUM
     Indication: PRODUCT USED FOR UNKNOWN INDICATION

REACTIONS (29)
  - Impaired work ability [None]
  - Pain [None]
  - Abdominal pain upper [None]
  - Asthenia [None]
  - Abdominal distension [None]
  - Impaired driving ability [None]
  - Headache [None]
  - Hair texture abnormal [None]
  - Performance status decreased [None]
  - Memory impairment [None]
  - Nausea [None]
  - Dizziness [None]
  - Dry mouth [None]
  - Dry skin [None]
  - Malaise [None]
  - Glomerular filtration rate decreased [None]
  - Musculoskeletal pain [None]
  - Fatigue [None]
  - Back pain [None]
  - Pain in extremity [None]
  - Visual acuity reduced [None]
  - Apathy [None]
  - Gait inability [None]
  - Irritability [None]
  - Aggression [None]
  - Libido decreased [None]
  - Muscle spasms [None]
  - Gastrointestinal disorder [None]
  - Social avoidant behaviour [None]

NARRATIVE: CASE EVENT DATE: 20170119
